FAERS Safety Report 24350513 (Version 1)
Quarter: 2024Q3

REPORT INFORMATION
  Report Type: Report from Study
  Country: KR (occurrence: KR)
  Receive Date: 20240923
  Receipt Date: 20240923
  Transmission Date: 20241017
  Serious: No
  Sender: ROCHE
  Company Number: KR-ROCHE-3527307

PATIENT
  Age: 64 Year

DRUGS (2)
  1. TRASTUZUMAB [Suspect]
     Active Substance: TRASTUZUMAB
     Indication: Bladder cancer
     Dosage: LAST DOSE DATE OF SUSPECTED DRUG: 13/FEB/2024
     Route: 041
     Dates: start: 20231026, end: 20231026
  2. PERTUZUMAB [Suspect]
     Active Substance: PERTUZUMAB
     Indication: Bladder cancer
     Dosage: LAST DOSE DATE OF SUSPECTED DRUG: 13/FEB/2024
     Route: 042
     Dates: start: 20231026, end: 20231026

REACTIONS (1)
  - Benign prostatic hyperplasia [Recovering/Resolving]

NARRATIVE: CASE EVENT DATE: 20240213
